FAERS Safety Report 10689380 (Version 3)
Quarter: 2015Q1

REPORT INFORMATION
  Report Type: Spontaneous
  Country: DE (occurrence: None)
  Receive Date: 20141231
  Receipt Date: 20150213
  Transmission Date: 20150720
  Serious: Yes (Other)
  Sender: FDA-Public Use
  Company Number: DE-20140177

PATIENT
  Age: 32 Year
  Sex: Male

DRUGS (2)
  1. DOTAREM [Suspect]
     Active Substance: GADOTERATE MEGLUMINE
     Indication: NUCLEAR MAGNETIC RESONANCE IMAGING ABDOMINAL
     Dosage: 15 ML (15 ML, 1 IN 1 D), INTRAVENOUS (NOT OTHERWISE SPECIFIED)?
     Route: 042
     Dates: start: 20141010, end: 20141010
  2. OMEPRAZOL [Concomitant]
     Active Substance: OMEPRAZOLE

REACTIONS (19)
  - Arrhythmia [None]
  - Hyperhidrosis [None]
  - Throat irritation [None]
  - Eye pruritus [None]
  - Paraesthesia [None]
  - Dysgeusia [None]
  - Glossodynia [None]
  - Oral discomfort [None]
  - Feeling hot [None]
  - Hot flush [None]
  - Restlessness [None]
  - Palpitations [None]
  - Photopsia [None]
  - Urticaria [None]
  - Abdominal discomfort [None]
  - Skin irritation [None]
  - Nausea [None]
  - Feeling cold [None]
  - Pruritus [None]

NARRATIVE: CASE EVENT DATE: 20141010
